FAERS Safety Report 12342907 (Version 3)
Quarter: 2016Q4

REPORT INFORMATION
  Report Type: Report from Study
  Country: US (occurrence: US)
  Receive Date: 20160506
  Receipt Date: 20161019
  Transmission Date: 20170207
  Serious: Yes (Hospitalization, Other)
  Sender: FDA-Public Use
  Company Number: PHEH2016US011351

PATIENT
  Sex: Male
  Weight: 23.9 kg

DRUGS (1)
  1. ILARIS [Suspect]
     Active Substance: CANAKINUMAB
     Dosage: EVERY 27-29 DAYS
     Route: 058
     Dates: start: 20150630, end: 20160614

REACTIONS (5)
  - Nasopharyngitis [Unknown]
  - Juvenile idiopathic arthritis [Unknown]
  - Pyrexia [Unknown]
  - Inappropriate schedule of drug administration [Unknown]
  - Cough [Unknown]
